FAERS Safety Report 26188824 (Version 1)
Quarter: 2025Q4

REPORT INFORMATION
  Report Type: Other
  Country: US (occurrence: US)
  Receive Date: 20251222
  Receipt Date: 20251222
  Transmission Date: 20260119
  Serious: Yes (Other)
  Sender: NOVITIUM PHARMA
  Company Number: US-NOVITIUM PHARMA-000421

PATIENT
  Sex: Female

DRUGS (3)
  1. PREDNISONE [Suspect]
     Active Substance: PREDNISONE
     Indication: Immunosuppression
  2. MYCOPHENOLIC ACID [Concomitant]
     Active Substance: MYCOPHENOLIC ACID
     Indication: Immunosuppression
  3. TACROLIMUS [Concomitant]
     Active Substance: TACROLIMUS
     Indication: Immunosuppression

REACTIONS (2)
  - Endocarditis [Recovering/Resolving]
  - Intracardiac mass [Recovering/Resolving]
